FAERS Safety Report 9729993 (Version 3)
Quarter: 2013Q4

REPORT INFORMATION
  Report Type: Spontaneous
  Country: BR (occurrence: BR)
  Receive Date: 20131204
  Receipt Date: 20131210
  Transmission Date: 20140711
  Serious: Yes (Other)
  Sender: FDA-Public Use
  Company Number: BR-PFIZER INC-2013341693

PATIENT
  Age: 69 Year
  Sex: Male
  Weight: 64 kg

DRUGS (9)
  1. ATORVASTATINA CALCICA TEUTO [Suspect]
     Dosage: 5 MG, UNK
  2. CLOPIDOGREL [Concomitant]
     Dosage: 25 MG, 2X/DAY
  3. ATENOLOL [Concomitant]
     Dosage: 50 MG (2 TABLETS OF 25 MG), DAILY
  4. LANSOPRAZOLE [Concomitant]
     Dosage: 30 MG, 1X/DAY (FASTING, IN THE MORNING)
  5. EMAMA [Concomitant]
     Dosage: 400 MG, 1X/DAY (AT LUNCH)
  6. PROEBA [Concomitant]
     Dosage: UNK, 1X/DAY (AT LUNCH)
  7. ASPIRINA PREVENT [Concomitant]
     Dosage: 100 MG, 1X/DAY (AT LUNCH)
  8. ATORVASTATIN CALCIUM [Suspect]
     Indication: HYPERCHOLESTEROLAEMIA
     Dosage: 10 MG, DAILY
     Dates: start: 201305
  9. ATORVASTATINA CALCICA TEUTO [Suspect]
     Dosage: UNK
     Dates: start: 201309, end: 20131123

REACTIONS (4)
  - Angiopathy [Recovered/Resolved]
  - Nausea [Recovered/Resolved]
  - Myalgia [Recovered/Resolved]
  - Muscle fatigue [Recovered/Resolved]
